FAERS Safety Report 25755459 (Version 2)
Quarter: 2025Q3

REPORT INFORMATION
  Report Type: Spontaneous
  Country: EU (occurrence: EU)
  Receive Date: 20250903
  Receipt Date: 20250916
  Transmission Date: 20251021
  Serious: Yes (Other)
  Sender: DELCATH SYSTEMS
  Company Number: EU-DELCATH SYSTEMS-DELC-000021

PATIENT

DRUGS (1)
  1. MELPHALAN [Suspect]
     Active Substance: MELPHALAN
     Indication: Metastases to liver
     Route: 013
     Dates: start: 20250819, end: 20250819

REACTIONS (5)
  - Device malfunction [Unknown]
  - Infection [Unknown]
  - Platelet count decreased [Unknown]
  - White blood cell count decreased [Unknown]
  - Haemoglobin decreased [Unknown]

NARRATIVE: CASE EVENT DATE: 20250819
